FAERS Safety Report 21083777 (Version 1)
Quarter: 2022Q3

REPORT INFORMATION
  Report Type: Spontaneous
  Country: US (occurrence: US)
  Receive Date: 20220714
  Receipt Date: 20220714
  Transmission Date: 20221027
  Serious: No
  Sender: FDA-Public Use
  Company Number: US-JAZZ-2022-US-012549

PATIENT
  Sex: Male
  Weight: 19.96 kg

DRUGS (1)
  1. EPIDIOLEX [Suspect]
     Active Substance: CANNABIDIOL
     Indication: Lennox-Gastaut syndrome
     Dosage: 200 MG IN THE MORNING, 150 MG AT NOON, AND 200 MG IN THE EVENING
     Route: 048
     Dates: start: 20190130

REACTIONS (2)
  - Illness [Unknown]
  - Product dose omission issue [Unknown]
